FAERS Safety Report 19827229 (Version 1)
Quarter: 2021Q3

REPORT INFORMATION
  Report Type: Spontaneous
  Country: US (occurrence: US)
  Receive Date: 20210914
  Receipt Date: 20210914
  Transmission Date: 20211014
  Serious: Yes (Other)
  Sender: FDA-Public Use
  Company Number: US-GLAXOSMITHKLINE-US2021GSK194761

PATIENT

DRUGS (5)
  1. ZANTAC [Suspect]
     Active Substance: RANITIDINE HYDROCHLORIDE
     Indication: FLATULENCE
     Dosage: UNK UNK, QD
     Dates: start: 200501, end: 201012
  2. ZANTAC [Suspect]
     Active Substance: RANITIDINE HYDROCHLORIDE
     Indication: FLATULENCE
     Dosage: UNK UNK, QD
     Dates: start: 200501, end: 201012
  3. RANITIDINE CAPSULE [Suspect]
     Active Substance: RANITIDINE
     Indication: FLATULENCE
     Dosage: UNK UNK, QD
     Dates: start: 200501, end: 201012
  4. ZANTAC [Suspect]
     Active Substance: RANITIDINE HYDROCHLORIDE
     Indication: FLATULENCE
     Dosage: UNK UNK, QD
     Dates: start: 200501, end: 201012
  5. RANITIDINE. [Suspect]
     Active Substance: RANITIDINE
     Indication: FLATULENCE
     Dosage: UNK, QD
     Dates: start: 200501, end: 201012

REACTIONS (1)
  - Colorectal cancer [Unknown]
